FAERS Safety Report 25837170 (Version 2)
Quarter: 2025Q3

REPORT INFORMATION
  Report Type: Report from Study
  Country: US (occurrence: US)
  Receive Date: 20250923
  Receipt Date: 20250926
  Transmission Date: 20251021
  Serious: Yes (Hospitalization)
  Sender: ELI LILLY AND COMPANY
  Company Number: US-ELI_LILLY_AND_COMPANY-US202505025856

PATIENT
  Age: 65 Year
  Sex: Male

DRUGS (3)
  1. TRULICITY [Suspect]
     Active Substance: DULAGLUTIDE
     Indication: Diabetes mellitus
     Route: 065
     Dates: start: 2018
  2. TRULICITY [Suspect]
     Active Substance: DULAGLUTIDE
     Route: 065
     Dates: start: 20230405, end: 202503
  3. CIALIS [Suspect]
     Active Substance: TADALAFIL
     Indication: Product used for unknown indication
     Dosage: 10 MG, DAILY
     Route: 065

REACTIONS (7)
  - Dizziness [Unknown]
  - Dyspnoea [Unknown]
  - Pain [Unknown]
  - Heart rate increased [Recovering/Resolving]
  - Blood pressure systolic increased [Recovering/Resolving]
  - Weight decreased [Recovering/Resolving]
  - Blood pressure increased [Recovering/Resolving]
